FAERS Safety Report 26189312 (Version 1)
Quarter: 2025Q4

REPORT INFORMATION
  Report Type: Spontaneous
  Country: US (occurrence: US)
  Receive Date: 20251223
  Receipt Date: 20251223
  Transmission Date: 20260118
  Serious: No
  Sender: AUROBINDO
  Company Number: US-AUROBINDO-AUR-APL-2025-051210

PATIENT
  Age: 82 Year
  Weight: 55.338 kg

DRUGS (32)
  1. LENALIDOMIDE [Suspect]
     Active Substance: LENALIDOMIDE
     Indication: Plasma cell myeloma
     Dosage: 5 MILLIGRAM, ONCE A DAY
     Route: 061
     Dates: start: 20251022
  2. LENALIDOMIDE [Concomitant]
     Active Substance: LENALIDOMIDE
     Indication: Product used for unknown indication
     Dosage: 1 CAP ONCE  DAILY  MORNING FOR  21 DAYS ON  14 DAYS
     Route: 061
  3. LENALIDOMIDE [Concomitant]
     Active Substance: LENALIDOMIDE
     Dosage: 1 CAP ONCE  DAILY  MORNING FOR  21 DAYS ON  14 DAYS
     Route: 061
  4. LENALIDOMIDE [Concomitant]
     Active Substance: LENALIDOMIDE
     Indication: Product used for unknown indication
     Dosage: UNK
     Route: 061
  5. LENALIDOMIDE [Concomitant]
     Active Substance: LENALIDOMIDE
     Dosage: UNK
     Route: 061
  6. LENALIDOMIDE [Concomitant]
     Active Substance: LENALIDOMIDE
     Dosage: UNK
     Route: 061
  7. LENALIDOMIDE [Concomitant]
     Active Substance: LENALIDOMIDE
     Dosage: UNK
     Route: 061
  8. REVLIMID [Concomitant]
     Active Substance: LENALIDOMIDE
     Indication: Product used for unknown indication
     Dosage: 1 CAP ONCE  DAILY  MORNING FOR  21 DAYS ON  14 DAYS OFF  ON 35 DAY  CYCLE
     Route: 061
  9. REVLIMID [Concomitant]
     Active Substance: LENALIDOMIDE
     Dosage: 1 CAP ONCE  DAILY  MORNING FOR  21 DAYS ON  14 DAYS OFF  ON 35 DAY  CYCLE
     Route: 061
  10. REVLIMID [Concomitant]
     Active Substance: LENALIDOMIDE
     Dosage: 1 CAP ONCE  DAILY  MORNING FOR  21 DAYS ON  14 DAYS OFF  ON 35 DAY  CYCLE
     Route: 061
  11. REVLIMID [Concomitant]
     Active Substance: LENALIDOMIDE
     Dosage: 1 CAP ONCE  DAILY  MORNING FOR  21 DAYS ON  14 DAYS OFF  ON 35 DAY  CYCLE
     Route: 061
  12. REVLIMID [Concomitant]
     Active Substance: LENALIDOMIDE
     Dosage: 1 CAP ONCE  DAILY  MORNING FOR  21 DAYS ON  14 DAYS OFF  ON 35 DAY  CYCLE
     Route: 061
  13. REVLIMID [Concomitant]
     Active Substance: LENALIDOMIDE
     Dosage: 1 CAP ONCE  DAILY  MORNING FOR  21 DAYS ON  14 DAYS OFF  ON 35 DAY  CYCLE
     Route: 061
  14. REVLIMID [Concomitant]
     Active Substance: LENALIDOMIDE
     Dosage: 1 CAP ONCE  DAILY  MORNING FOR  21 DAYS ON  14 DAYS OFF  ON 35 DAY  CYCLE
     Route: 061
  15. REVLIMID [Concomitant]
     Active Substance: LENALIDOMIDE
     Dosage: 1 CAP ONCE  DAILY  MORNING FOR  21 DAYS ON  14 DAYS OFF  ON 35 DAY  CYCLE
     Route: 061
  16. Cetrizine HCL [Concomitant]
     Indication: Product used for unknown indication
     Dosage: 1 CAP DAILY
     Route: 061
  17. ASPIRIN [Concomitant]
     Active Substance: ASPIRIN
     Indication: Product used for unknown indication
     Dosage: UNK
     Route: 065
  18. SIMVASTATIN [Concomitant]
     Active Substance: SIMVASTATIN
     Indication: Product used for unknown indication
     Dosage: UNK
     Route: 065
  19. AMLODIPINE [Concomitant]
     Active Substance: AMLODIPINE BESYLATE
     Indication: Product used for unknown indication
     Dosage: UNK
     Route: 065
  20. PANTOPRAZOLE [Concomitant]
     Active Substance: PANTOPRAZOLE
     Indication: Product used for unknown indication
     Dosage: UNK
     Route: 065
  21. FAMOTIDINE [Concomitant]
     Active Substance: FAMOTIDINE
     Indication: Product used for unknown indication
     Dosage: UNK
     Route: 061
  22. MECLIZINE HYDROCHLORIDE [Concomitant]
     Active Substance: MECLIZINE HYDROCHLORIDE
     Indication: Product used for unknown indication
     Dosage: UNK
     Route: 065
  23. Multivitamin tabs [Concomitant]
     Indication: Product used for unknown indication
     Dosage: UNK
     Route: 065
  24. Centrum Adults [Concomitant]
     Indication: Product used for unknown indication
     Dosage: UNK
     Route: 065
  25. VITAMIN B12 [Concomitant]
     Active Substance: CYANOCOBALAMIN
     Indication: Product used for unknown indication
     Dosage: UNK
     Route: 065
  26. FERROUS SULFATE [Concomitant]
     Active Substance: FERROUS SULFATE
     Indication: Product used for unknown indication
     Dosage: UNK
     Route: 065
  27. FERROUS SULFATE [Concomitant]
     Active Substance: FERROUS SULFATE
     Indication: Product used for unknown indication
     Dosage: UNK
     Route: 065
  28. CYANOCOBALAMIN [Concomitant]
     Active Substance: CYANOCOBALAMIN
     Indication: Product used for unknown indication
     Dosage: UNK
     Route: 065
  29. METOPROLOL SUCCINATE [Concomitant]
     Active Substance: METOPROLOL SUCCINATE
     Indication: Product used for unknown indication
     Dosage: UNK
     Route: 065
  30. FOLIC ACID [Concomitant]
     Active Substance: FOLIC ACID
     Indication: Product used for unknown indication
     Dosage: UNK
     Route: 065
  31. ACYCLOVIR [Concomitant]
     Active Substance: ACYCLOVIR
     Indication: Product used for unknown indication
     Dosage: UNK
     Route: 065
  32. ACYCLOVIR [Concomitant]
     Active Substance: ACYCLOVIR
     Indication: Product used for unknown indication
     Dosage: UNK
     Route: 065

REACTIONS (1)
  - Renal disorder [Not Recovered/Not Resolved]
